FAERS Safety Report 6700688-6 (Version None)
Quarter: 2010Q2

REPORT INFORMATION
  Report Type: 
  Country: None (occurrence: None)
  Receive Date: 20100426
  Receipt Date: 20100416
  Transmission Date: 20101027
  Serious: Yes (Hospitalization)
  Sender: FDA-Public Use
  Company Number: 566716

PATIENT
  Age: 61 Year
  Sex: Female

DRUGS (7)
  1. VINORELBINE TARTRATE [Suspect]
     Indication: NON-SMALL CELL LUNG CANCER
  2. AMLODIPINE [Concomitant]
  3. (CHLORPHENAMINE) [Concomitant]
  4. CIPROFLOXACIN [Concomitant]
  5. LISINOPRIL [Concomitant]
  6. METOCLOPRAMIDE HYDROCHLORIDE [Concomitant]
  7. (SIMVASTATIN) [Concomitant]

REACTIONS (2)
  - CHEST PAIN [None]
  - PLEURITIC PAIN [None]
